FAERS Safety Report 25009102 (Version 18)
Quarter: 2025Q4

REPORT INFORMATION
  Report Type: Report from Study
  Country: IN (occurrence: IN)
  Receive Date: 20250225
  Receipt Date: 20251229
  Transmission Date: 20260118
  Serious: Yes (Hospitalization)
  Sender: PFIZER
  Company Number: IN-PFIZER INC-PV202400156585

PATIENT
  Age: 31 Year
  Sex: Male
  Weight: 84 kg

DRUGS (5)
  1. LORLATINIB [Suspect]
     Active Substance: LORLATINIB
     Indication: Neoplasm malignant
     Dosage: 100 MG, 1X/DAY
     Route: 048
     Dates: start: 20241115
  2. LEVOTHYROXINE [Concomitant]
     Active Substance: LEVOTHYROXINE
     Dosage: 25 MG
  3. THYROWEL [Concomitant]
     Indication: Hypothyroidism
     Dosage: PLUS; DAILY AFTER LUNCH
  4. DENOSUREL [Concomitant]
     Dosage: 120 MG
  5. LEVOTHYROXINE [Concomitant]
     Active Substance: LEVOTHYROXINE
     Indication: Hypothyroidism
     Dosage: 25 MG, DAILY BEFORE BREAKFAST

REACTIONS (44)
  - Blood cholesterol increased [Not Recovered/Not Resolved]
  - Goitre [Recovered/Resolved]
  - Lipids increased [Not Recovered/Not Resolved]
  - Vitamin D decreased [Not Recovered/Not Resolved]
  - Blood glucose increased [Recovering/Resolving]
  - Increased appetite [Not Recovered/Not Resolved]
  - Lipids abnormal [Recovering/Resolving]
  - Fatigue [Recovered/Resolved]
  - Sleep disorder [Not Recovered/Not Resolved]
  - Pain in extremity [Recovering/Resolving]
  - Anxiety [Not Recovered/Not Resolved]
  - Tumour pain [Not Recovered/Not Resolved]
  - Vitamin B12 increased [Not Recovered/Not Resolved]
  - Iron binding capacity total decreased [Not Recovered/Not Resolved]
  - Hepatic enzyme abnormal [Not Recovered/Not Resolved]
  - Renal function test abnormal [Not Recovered/Not Resolved]
  - Gait disturbance [Recovering/Resolving]
  - Weight increased [Not Recovered/Not Resolved]
  - Swelling face [Not Recovered/Not Resolved]
  - Cardiac disorder [Not Recovered/Not Resolved]
  - Anger [Not Recovered/Not Resolved]
  - Stress [Not Recovered/Not Resolved]
  - Blood thyroid stimulating hormone increased [Recovering/Resolving]
  - Glycosylated haemoglobin increased [Recovering/Resolving]
  - Full blood count abnormal [Not Recovered/Not Resolved]
  - Liver function test abnormal [Recovering/Resolving]
  - Globulins increased [Not Recovered/Not Resolved]
  - Blood urea nitrogen/creatinine ratio decreased [Not Recovered/Not Resolved]
  - Blood uric acid decreased [Not Recovered/Not Resolved]
  - Blood alkaline phosphatase increased [Not Recovered/Not Resolved]
  - Back pain [Recovered/Resolved]
  - Hormone level abnormal [Not Recovered/Not Resolved]
  - Blood calcium decreased [Not Recovered/Not Resolved]
  - Blood iron decreased [Not Recovered/Not Resolved]
  - Blood alkaline phosphatase decreased [Not Recovered/Not Resolved]
  - Arthralgia [Not Recovered/Not Resolved]
  - Sleep deficit [Not Recovered/Not Resolved]
  - Nervousness [Not Recovered/Not Resolved]
  - Thinking abnormal [Not Recovered/Not Resolved]
  - Headache [Not Recovered/Not Resolved]
  - Pyrexia [Recovered/Resolved]
  - Globulins decreased [Not Recovered/Not Resolved]
  - Peripheral swelling [Recovering/Resolving]
  - Nail discomfort [Recovering/Resolving]

NARRATIVE: CASE EVENT DATE: 20240101
